FAERS Safety Report 9508266 (Version 1)
Quarter: 2013Q3

REPORT INFORMATION
  Report Type: Spontaneous
  Country: US (occurrence: US)
  Receive Date: 20130909
  Receipt Date: 20130909
  Transmission Date: 20140515
  Serious: No
  Sender: FDA-Public Use
  Company Number: US-PFIZER INC-2013258513

PATIENT
  Age: 62 Year
  Sex: Female
  Weight: 76.64 kg

DRUGS (5)
  1. EFFEXOR XR [Suspect]
     Indication: ANXIETY
     Dosage: 75 MG, DAILY
     Route: 048
  2. ULTRAM [Suspect]
     Indication: BACK DISORDER
     Dosage: 50 MG, 3X/DAY
     Route: 048
  3. ULTRAM [Suspect]
     Indication: ARTHROPATHY
     Dosage: 50 MG, 2X/DAY
     Route: 048
  4. DIABETA [Concomitant]
     Indication: DIABETES MELLITUS
     Dosage: 2.5 MG, DAILY
  5. MICARDIS HCT [Concomitant]
     Indication: HYPERTENSION
     Dosage: [TELMISARTAN 40MG]/[HYDROCHLOROTHIAZIDE 12.5MG], UNK

REACTIONS (3)
  - Off label use [Unknown]
  - Dizziness [Unknown]
  - Feeling drunk [Unknown]
